FAERS Safety Report 15543269 (Version 2)
Quarter: 2019Q4

REPORT INFORMATION
  Report Type: Spontaneous
  Country: JP (occurrence: JP)
  Receive Date: 20181023
  Receipt Date: 20191211
  Transmission Date: 20200122
  Serious: Yes (Other)
  Sender: FDA-Public Use
  Company Number: PHJP2016JP015925

PATIENT
  Age: 60 Year
  Sex: Female

DRUGS (1)
  1. NEORAL [Suspect]
     Active Substance: CYCLOSPORINE
     Indication: CUTANEOUS T-CELL LYMPHOMA
     Dosage: 3 MG/KG, QD
     Route: 048

REACTIONS (4)
  - Rash [Unknown]
  - Condition aggravated [Unknown]
  - Cutaneous T-cell lymphoma [Unknown]
  - Product use in unapproved indication [Unknown]
